FAERS Safety Report 7209179-X (Version None)
Quarter: 2011Q1

REPORT INFORMATION
  Report Type: 
  Country: None (occurrence: None)
  Receive Date: 20110104
  Receipt Date: 20101222
  Transmission Date: 20110831
  Serious: Yes (Other)
  Sender: FDA-Public Use
  Company Number: JP-ACTELION-A-CH2010-43224

PATIENT
  Age: 36 Year
  Sex: Female

DRUGS (3)
  1. EPOPROSTENOL SODIUM [Suspect]
  2. TRACLEER [Suspect]
     Indication: PULMONARY HYPERTENSION
     Dosage: UNK , UNK
     Route: 048
  3. SILDENAFIL [Concomitant]

REACTIONS (4)
  - CONDITION AGGRAVATED [None]
  - PRURITUS [None]
  - PULMONARY HYPERTENSION [None]
  - CATHETER SITE PRURITUS [None]
